FAERS Safety Report 15090823 (Version 1)
Quarter: 2018Q2

REPORT INFORMATION
  Report Type: Spontaneous
  Country: US (occurrence: US)
  Receive Date: 20180629
  Receipt Date: 20180629
  Transmission Date: 20180711
  Serious: No
  Sender: FDA-Public Use
  Company Number: US-AMGEN-USASP2011015004

PATIENT
  Age: 81 Year
  Sex: Female
  Weight: 85.26 kg

DRUGS (1)
  1. PROLIA [Suspect]
     Active Substance: DENOSUMAB
     Indication: PRODUCT USED FOR UNKNOWN INDICATION
     Dosage: UNK UNK, ONE TIME DOSE
     Dates: start: 20100826

REACTIONS (3)
  - Malaise [Recovered/Resolved with Sequelae]
  - Pain in extremity [Recovered/Resolved with Sequelae]
  - Peripheral swelling [Recovered/Resolved with Sequelae]

NARRATIVE: CASE EVENT DATE: 20100826
